FAERS Safety Report 11025496 (Version 1)
Quarter: 2015Q2

REPORT INFORMATION
  Report Type: Spontaneous
  Country: US (occurrence: US)
  Receive Date: 20150414
  Receipt Date: 20150414
  Transmission Date: 20150821
  Serious: Yes (Other)
  Sender: FDA-Public Use
  Company Number: US-PFIZER INC-2015121342

PATIENT
  Age: 57 Year
  Sex: Female
  Weight: 64 kg

DRUGS (10)
  1. MS CONTIN [Concomitant]
     Active Substance: MORPHINE SULFATE
     Indication: ARTHRITIS
     Dosage: 30 MG, 2X/DAY (EVERY 12 HOURS, MORNING AND AT NIGHT)
     Route: 048
     Dates: start: 20140912
  2. VITAMIN D3 [Concomitant]
     Active Substance: CHOLECALCIFEROL
     Indication: SUPPLEMENTATION THERAPY
     Dosage: 5000 IU, 2X/DAY
     Route: 048
     Dates: start: 20121110
  3. SENOKOT [Suspect]
     Active Substance: SENNOSIDES
     Indication: CONSTIPATION
     Dosage: UNK, 1X/DAY
  4. LETROZOLE. [Suspect]
     Active Substance: LETROZOLE
     Indication: BREAST CANCER METASTATIC
     Dosage: UNK
     Dates: start: 20150123
  5. LORAZEPAM. [Concomitant]
     Active Substance: LORAZEPAM
     Indication: ANXIETY
     Dosage: 0.5 MG, EVERY 6-8 HOURS AS NEEDED)
     Route: 048
     Dates: start: 20150112
  6. PROCHLORPERAZINE MALEATE. [Concomitant]
     Active Substance: PROCHLORPERAZINE MALEATE
     Indication: NAUSEA
     Dosage: 10 MG, EVERY 6 HOURS AS NEEDED
     Route: 048
  7. CALCIUM/MAGNESIUM [Concomitant]
     Indication: SUPPLEMENTATION THERAPY
     Dosage: 1 DF, DAILY (CALCIUM 300 MG, MAGNESIUM 300MG)
     Route: 048
     Dates: start: 20141102
  8. GABAPENTIN. [Concomitant]
     Active Substance: GABAPENTIN
     Indication: PAIN
     Dosage: 100 MG, 3X/DAY
     Route: 048
     Dates: start: 20140605
  9. IBRANCE [Suspect]
     Active Substance: PALBOCICLIB
     Indication: BREAST CANCER METASTATIC
     Dosage: 125 MG DAILY BY 21 DAYS OF EACH 28 DAY CYCLE
     Route: 048
     Dates: start: 20150123
  10. MORPHINE [Concomitant]
     Active Substance: MORPHINE
     Indication: DYSPNOEA
     Dosage: 20 MG, AS NEEDED

REACTIONS (1)
  - Neutropenia [Unknown]
